FAERS Safety Report 9571293 (Version 1)
Quarter: 2013Q1

REPORT INFORMATION
  Report Type: Spontaneous
  Country: US (occurrence: None)
  Receive Date: 20120515
  Receipt Date: 20120515
  Transmission Date: 20140127
  Serious: Yes (Other)
  Sender: FDA-Public Use
  Company Number: PHEH2009US16678

PATIENT
  Age: 70 Year
  Sex: Female

DRUGS (1)
  1. ZOMETA (ZOLEDRONATE) UNKNOWN [Suspect]
     Route: 042
     Dates: start: 20091120, end: 20091122

REACTIONS (2)
  - Blood calcium decreased [None]
  - Accidental overdose [None]
